FAERS Safety Report 7652384-9 (Version None)
Quarter: 2011Q3

REPORT INFORMATION
  Report Type: 
  Country: None (occurrence: None)
  Receive Date: 20110803
  Receipt Date: 20110721
  Transmission Date: 20111222
  Serious: Yes (Disabling, Other)
  Sender: FDA-Public Use
  Company Number: US-BAYER-200939236NA

PATIENT
  Age: 63 Year
  Sex: Female
  Weight: 61.364 kg

DRUGS (23)
  1. MAGNEVIST [Suspect]
     Indication: ANGIOGRAM
     Dates: start: 20001002, end: 20001002
  2. OPTIMARK [Suspect]
     Indication: NUCLEAR MAGNETIC RESONANCE IMAGING BRAIN
     Dates: start: 20060203, end: 20060203
  3. NEPHROCAPS [Concomitant]
  4. NEPHROCAPS [Concomitant]
     Dosage: 1 TAB UNK, UNK
  5. VENOFER [Concomitant]
  6. PROHANCE [Suspect]
     Indication: PRODUCT USED FOR UNKNOWN INDICATION
  7. RENAGEL [Concomitant]
  8. PROTONIX [Concomitant]
     Dosage: 40 MG, UNK
  9. OMNISCAN [Suspect]
     Indication: PRODUCT USED FOR UNKNOWN INDICATION
  10. MULTIHANCE [Suspect]
     Indication: PRODUCT USED FOR UNKNOWN INDICATION
  11. GADOLINIUM IN UNSPECIFIED DRUG [Suspect]
     Dates: start: 20000829, end: 20000829
  12. OPTIMARK [Suspect]
     Dates: start: 20060922, end: 20060922
  13. RENAGEL [Concomitant]
     Dosage: 1600 MG, TID
  14. ACETAMINOPHEN [Concomitant]
  15. EPOGEN [Concomitant]
  16. MAGNEVIST [Suspect]
     Indication: NUCLEAR MAGNETIC RESONANCE IMAGING BRAIN
     Dates: start: 20001104, end: 20001104
  17. PHOSLO [Concomitant]
  18. CELLCEPT [Concomitant]
  19. MAGNEVIST [Suspect]
     Dates: start: 20001212, end: 20001212
  20. MAGNEVIST [Suspect]
     Route: 042
     Dates: start: 20050707, end: 20050707
  21. ZOCOR [Concomitant]
     Dosage: 40 MG, UNK
  22. COUMADIN [Concomitant]
     Dosage: 4 MG, UNK
  23. ZEMPLAR [Concomitant]

REACTIONS (22)
  - JOINT CONTRACTURE [None]
  - MOBILITY DECREASED [None]
  - SKIN TIGHTNESS [None]
  - INDURATION [None]
  - SKIN ATROPHY [None]
  - SKIN FIBROSIS [None]
  - PAIN [None]
  - SKIN HYPERPIGMENTATION [None]
  - SKIN WARM [None]
  - ABASIA [None]
  - HYPOAESTHESIA [None]
  - PARAESTHESIA [None]
  - DEFORMITY [None]
  - ERYTHEMA [None]
  - SKIN HYPERTROPHY [None]
  - JOINT RANGE OF MOTION DECREASED [None]
  - NEPHROGENIC SYSTEMIC FIBROSIS [None]
  - SKIN INDURATION [None]
  - SKIN DISCOLOURATION [None]
  - GENERAL PHYSICAL HEALTH DETERIORATION [None]
  - SCAR [None]
  - OEDEMA PERIPHERAL [None]
